FAERS Safety Report 7198144-7 (Version None)
Quarter: 2010Q4

REPORT INFORMATION
  Report Type: 
  Country: None (occurrence: None)
  Receive Date: 20101214
  Receipt Date: 20101206
  Transmission Date: 20110411
  Serious: Yes (Hospitalization)
  Sender: FDA-Public Use
  Company Number: D1005308

PATIENT
  Age: 29 Year
  Sex: Male

DRUGS (1)
  1. JANTOVEN [Suspect]
     Indication: FACTOR V LEIDEN MUTATION
     Dosage: 7.5 MG 5 DAYS/WK, 10 MG 2 DAYS/WK, ORAL
     Route: 048
     Dates: start: 20101018, end: 20101116

REACTIONS (2)
  - DEEP VEIN THROMBOSIS [None]
  - DRUG DOSE OMISSION [None]
